FAERS Safety Report 4605993-5 (Version None)
Quarter: 2005Q1

REPORT INFORMATION
  Report Type: 
  Country: None (occurrence: None)
  Receive Date: 20050311
  Receipt Date: 20050217
  Transmission Date: 20050727
  Serious: Yes (Other)
  Sender: FDA-Public Use
  Company Number: US-GLAXOSMITHKLINE-A0546157A

PATIENT
  Age: 65 Year
  Sex: Female
  Weight: 72 kg

DRUGS (4)
  1. ECOTRIN REGULAR STRENGTH TABLETS [Suspect]
     Indication: HEADACHE
     Route: 048
     Dates: start: 20050213
  2. TUCKS [Concomitant]
     Route: 061
  3. LACTULOSE [Concomitant]
     Indication: CONSTIPATION
     Route: 048
  4. ANTI-INFLAMMATORY [Concomitant]
     Indication: ENDODONTIC PROCEDURE

REACTIONS (1)
  - RECTAL HAEMORRHAGE [None]
